FAERS Safety Report 7298868-7 (Version None)
Quarter: 2011Q1

REPORT INFORMATION
  Report Type: 
  Country: None (occurrence: None)
  Receive Date: 20110217
  Receipt Date: 20110207
  Transmission Date: 20110831
  Serious: Yes (Other)
  Sender: FDA-Public Use
  Company Number: IN-ROCHE-758163

PATIENT
  Age: 58 Year
  Sex: Male

DRUGS (1)
  1. BEVACIZUMAB [Suspect]
     Dosage: 1.25 MG IN 0.05 ML
     Route: 031

REACTIONS (1)
  - MACULAR ISCHAEMIA [None]
